FAERS Safety Report 13614257 (Version 1)
Quarter: 2017Q2

REPORT INFORMATION
  Report Type: Spontaneous
  Country: IT (occurrence: IT)
  Receive Date: 20170606
  Receipt Date: 20170606
  Transmission Date: 20170830
  Serious: Yes (Other)
  Sender: FDA-Public Use
  Company Number: IT-TEVA-763320ACC

PATIENT
  Age: 20 Year
  Sex: Male

DRUGS (1)
  1. COPAXONE [Suspect]
     Active Substance: GLATIRAMER ACETATE
     Indication: MULTIPLE SCLEROSIS

REACTIONS (7)
  - Dyspnoea [Unknown]
  - Laryngeal oedema [Unknown]
  - Depressed mood [Unknown]
  - Hypersensitivity [Unknown]
  - Somatic symptom disorder [Unknown]
  - Pyrexia [Unknown]
  - Joint stiffness [Unknown]
